FAERS Safety Report 15272589 (Version 2)
Quarter: 2018Q3

REPORT INFORMATION
  Report Type: Spontaneous
  Country: GB (occurrence: GB)
  Receive Date: 20180813
  Receipt Date: 20180911
  Transmission Date: 20181010
  Serious: Yes (Other)
  Sender: FDA-Public Use
  Company Number: PHHY2018GB066829

PATIENT
  Age: 18 Year
  Sex: Female
  Weight: 35.3 kg

DRUGS (8)
  1. PREGABALIN. [Suspect]
     Active Substance: PREGABALIN
     Indication: CHRONIC FATIGUE SYNDROME
     Route: 065
  2. CHLORPHENAMINE [Concomitant]
     Active Substance: CHLORPHENIRAMINE MALEATE
     Indication: PRODUCT USED FOR UNKNOWN INDICATION
     Dosage: UNK
     Route: 065
  3. GABAPENTIN. [Suspect]
     Active Substance: GABAPENTIN
     Indication: PAIN
     Dosage: UNK
     Route: 065
  4. PREGABALIN. [Suspect]
     Active Substance: PREGABALIN
     Indication: PAIN
  5. CETIRIZINE [Concomitant]
     Active Substance: CETIRIZINE HYDROCHLORIDE
     Indication: PRODUCT USED FOR UNKNOWN INDICATION
     Dosage: UNK
     Route: 065
  6. GABAPENTIN. [Suspect]
     Active Substance: GABAPENTIN
     Indication: CHRONIC FATIGUE SYNDROME
  7. GABAPENTIN. [Suspect]
     Active Substance: GABAPENTIN
     Indication: ABDOMINAL PAIN
  8. PREGABALIN. [Suspect]
     Active Substance: PREGABALIN
     Indication: ABDOMINAL PAIN

REACTIONS (2)
  - Drug effective for unapproved indication [Unknown]
  - Eosinophilic colitis [Recovering/Resolving]
